FAERS Safety Report 13052488 (Version 1)
Quarter: 2016Q4

REPORT INFORMATION
  Report Type: Spontaneous
  Country: US (occurrence: US)
  Receive Date: 20161221
  Receipt Date: 20161221
  Transmission Date: 20170207
  Serious: Yes (Other)
  Sender: FDA-Public Use
  Company Number: US-BEH-2016076459

PATIENT
  Sex: Female
  Weight: 77.98 kg

DRUGS (28)
  1. ZOFRAN [Concomitant]
     Active Substance: ONDANSETRON HYDROCHLORIDE
  2. XANAX [Concomitant]
     Active Substance: ALPRAZOLAM
  3. MIRALAX [Concomitant]
     Active Substance: POLYETHYLENE GLYCOL 3350
  4. ACETAMINOPHEN. [Concomitant]
     Active Substance: ACETAMINOPHEN
  5. DIPHENHYDRAMINE. [Concomitant]
     Active Substance: DIPHENHYDRAMINE
  6. SINGULAIR [Concomitant]
     Active Substance: MONTELUKAST SODIUM
  7. FISH OIL [Concomitant]
     Active Substance: FISH OIL
  8. IBUPROFEN. [Concomitant]
     Active Substance: IBUPROFEN
  9. VITAMIN B12 [Concomitant]
     Active Substance: CYANOCOBALAMIN
  10. MULTIVITAMIN                       /00097801/ [Concomitant]
     Active Substance: VITAMINS
  11. IPRATROPIUM [Concomitant]
     Active Substance: IPRATROPIUM
  12. HIZENTRA [Suspect]
     Active Substance: HUMAN IMMUNOGLOBULIN G
     Indication: HYPOGAMMAGLOBULINAEMIA
     Dosage: 10 G, UNK
     Route: 058
     Dates: start: 20160906
  13. VALTREX [Concomitant]
     Active Substance: VALACYCLOVIR HYDROCHLORIDE
  14. ZYRTEC [Concomitant]
     Active Substance: CETIRIZINE HYDROCHLORIDE
  15. ASPIRIN. [Concomitant]
     Active Substance: ASPIRIN
  16. IRON [Concomitant]
     Active Substance: IRON
  17. EPIPEN [Concomitant]
     Active Substance: EPINEPHRINE
  18. OXYGEN. [Concomitant]
     Active Substance: OXYGEN
  19. NORCO [Concomitant]
     Active Substance: ACETAMINOPHEN\HYDROCODONE BITARTRATE
  20. LEVAQUIN [Concomitant]
     Active Substance: LEVOFLOXACIN
  21. HYDRALAZINE [Concomitant]
     Active Substance: HYDRALAZINE HYDROCHLORIDE
  22. FERROUS SULFATE. [Concomitant]
     Active Substance: FERROUS SULFATE
  23. CRESTOR [Concomitant]
     Active Substance: ROSUVASTATIN CALCIUM
  24. HIZENTRA [Suspect]
     Active Substance: HUMAN IMMUNOGLOBULIN G
     Dosage: UNK
     Route: 058
  25. PREDNISONE. [Concomitant]
     Active Substance: PREDNISONE
  26. LACTULOSE. [Concomitant]
     Active Substance: LACTULOSE
  27. NEXIUM [Concomitant]
     Active Substance: ESOMEPRAZOLE MAGNESIUM
  28. DILTIAZEM. [Concomitant]
     Active Substance: DILTIAZEM

REACTIONS (1)
  - Facial paralysis [Unknown]
